FAERS Safety Report 7506860-X (Version None)
Quarter: 2011Q2

REPORT INFORMATION
  Report Type: 
  Country: None (occurrence: None)
  Receive Date: 20110526
  Receipt Date: 20110520
  Transmission Date: 20111010
  Serious: Yes (Hospitalization)
  Sender: FDA-Public Use
  Company Number: B0721388A

PATIENT
  Age: 7 Year
  Sex: Female

DRUGS (4)
  1. LAMICTAL [Suspect]
     Dosage: 25MG PER DAY
     Route: 048
     Dates: end: 20100601
  2. CARBAMAZEPINE [Concomitant]
     Indication: EPILEPSY
     Route: 048
  3. VALPROATE SODIUM [Concomitant]
     Indication: EPILEPSY
     Route: 048
  4. LAMICTAL [Suspect]
     Indication: EPILEPSY
     Dosage: 2MG PER DAY
     Route: 048
     Dates: start: 20100201

REACTIONS (7)
  - HAND-FOOT-AND-MOUTH DISEASE [None]
  - VOMITING [None]
  - PYREXIA [None]
  - MYOCARDITIS [None]
  - RASH [None]
  - DRUG RASH WITH EOSINOPHILIA AND SYSTEMIC SYMPTOMS [None]
  - THYROIDITIS [None]
